FAERS Safety Report 4532156-4 (Version None)
Quarter: 2004Q4

REPORT INFORMATION
  Report Type: 
  Country: None (occurrence: None)
  Receive Date: 20041217
  Receipt Date: 20041208
  Transmission Date: 20050328
  Serious: Yes (Hospitalization, Other)
  Sender: FDA-Public Use
  Company Number: 200410616BNE

PATIENT
  Age: 76 Year
  Sex: Male

DRUGS (2)
  1. ASPIRIN [Suspect]
     Indication: PROPHYLAXIS
     Dosage: ORAL
     Route: 048
  2. CLOPIDOGREL BISULFATE [Suspect]
     Indication: PROPHYLAXIS
     Dosage: 75 MG , TOTAL DAILY, ORAL
     Route: 048

REACTIONS (5)
  - CHOROIDAL HAEMORRHAGE [None]
  - DRUG INTERACTION [None]
  - EYE OPERATION COMPLICATION [None]
  - HYPHAEMA [None]
  - VITREOUS HAEMORRHAGE [None]
